FAERS Safety Report 19924587 (Version 3)
Quarter: 2021Q4

REPORT INFORMATION
  Report Type: Spontaneous
  Country: SI (occurrence: None)
  Receive Date: 20211006
  Receipt Date: 20211111
  Transmission Date: 20220304
  Serious: Yes (Hospitalization, Other)
  Sender: FDA-Public Use
  Company Number: 2021A751583

PATIENT
  Age: 45 Year
  Sex: Male
  Weight: 86 kg

DRUGS (10)
  1. ROSUVASTATIN [Suspect]
     Active Substance: ROSUVASTATIN
     Indication: Product used for unknown indication
     Dosage: UNK
     Route: 065
  2. OMEPRAZOLE [Suspect]
     Active Substance: OMEPRAZOLE
     Indication: Product used for unknown indication
     Route: 065
  3. AMLODIPINE [Suspect]
     Active Substance: AMLODIPINE BESYLATE
     Indication: Product used for unknown indication
     Dosage: UNK
     Route: 065
  4. METFORMIN [Suspect]
     Active Substance: METFORMIN HYDROCHLORIDE
     Indication: Product used for unknown indication
     Dosage: UNK
     Route: 065
  5. PERINDOPRIL [Suspect]
     Active Substance: PERINDOPRIL
     Indication: Product used for unknown indication
     Dosage: 2.0MG UNKNOWN
     Route: 065
  6. BISOPROLOL [Suspect]
     Active Substance: BISOPROLOL
     Indication: Product used for unknown indication
     Dosage: 1.25MG UNKNOWN
     Route: 065
  7. BROMAZEPAM [Suspect]
     Active Substance: BROMAZEPAM
     Indication: Product used for unknown indication
     Dosage: 1.5 MG,2X ?? SCAT III
     Route: 065
  8. ASPIRIN [Concomitant]
     Active Substance: ASPIRIN
     Indication: Product used for unknown indication
     Dosage: 100.0MG UNKNOWN
     Route: 065
  9. GLICLAZIDE [Concomitant]
     Active Substance: GLICLAZIDE
     Indication: Product used for unknown indication
     Dosage: UNK
     Route: 065
  10. TICAGRELOR [Concomitant]
     Active Substance: TICAGRELOR
     Indication: Product used for unknown indication
     Route: 065

REACTIONS (20)
  - Tremor [Recovering/Resolving]
  - Post-traumatic stress disorder [Unknown]
  - Myocardial ischaemia [Unknown]
  - Diastolic dysfunction [Unknown]
  - Coronary artery disease [Unknown]
  - Stenosis [Recovering/Resolving]
  - Throat tightness [Unknown]
  - Myocardial infarction [Unknown]
  - Chest discomfort [Unknown]
  - Coronary artery occlusion [Unknown]
  - Muscular weakness [Recovering/Resolving]
  - Gait disturbance [Unknown]
  - Cough [Unknown]
  - Dyspnoea [Unknown]
  - Oropharyngeal discomfort [Unknown]
  - Ear pain [Unknown]
  - Nausea [Unknown]
  - Sleep disorder [Unknown]
  - Headache [Unknown]
  - Dizziness [Unknown]

NARRATIVE: CASE EVENT DATE: 20200514
